FAERS Safety Report 7046621-1 (Version None)
Quarter: 2010Q4

REPORT INFORMATION
  Report Type: 
  Country: None (occurrence: None)
  Receive Date: 20101015
  Receipt Date: 20101006
  Transmission Date: 20110411
  Serious: No
  Sender: FDA-Public Use
  Company Number: US-BIOGENIDEC-2010BI035091

PATIENT
  Sex: Female

DRUGS (2)
  1. TYSABRI [Suspect]
     Indication: MULTIPLE SCLEROSIS
     Route: 042
     Dates: start: 20080711, end: 20100401
  2. TYSABRI [Suspect]
     Route: 042

REACTIONS (4)
  - DEPRESSION [None]
  - DIZZINESS [None]
  - HYPOTENSION [None]
  - MIDDLE EAR EFFUSION [None]
